FAERS Safety Report 5234451-2 (Version None)
Quarter: 2007Q1

REPORT INFORMATION
  Report Type: 
  Country: None (occurrence: None)
  Receive Date: 20070209
  Receipt Date: 20070201
  Transmission Date: 20070707
  Serious: Yes (Hospitalization)
  Sender: FDA-Public Use
  Company Number: JP-JPN-A200605531

PATIENT
  Sex: Male

DRUGS (5)
  1. PAXIL [Suspect]
     Dosage: 10MG TWICE PER DAY
     Dates: start: 19990716, end: 20030520
  2. CLONAZEPAM [Suspect]
     Dosage: 1MG PER DAY
     Dates: start: 20000101, end: 20030520
  3. OXYTOCIN [Suspect]
     Dates: start: 20030114, end: 20030114
  4. PAIN RELIEF [Suspect]
     Dates: start: 20030114, end: 20030114
  5. FENTANYL [Suspect]
     Dates: start: 20030114, end: 20030114

REACTIONS (9)
  - DRUG EXPOSURE DURING PREGNANCY [None]
  - DRUG WITHDRAWAL SYNDROME NEONATAL [None]
  - FONTANELLE BULGING [None]
  - NEONATAL TACHYPNOEA [None]
  - OPISTHOTONUS [None]
  - RESPIRATORY DISORDER NEONATAL [None]
  - TACHYPNOEA [None]
  - VOMITING [None]
  - VOMITING NEONATAL [None]
